FAERS Safety Report 15100442 (Version 2)
Quarter: 2018Q3

REPORT INFORMATION
  Report Type: Spontaneous
  Country: IT (occurrence: IT)
  Receive Date: 20180703
  Receipt Date: 20180709
  Transmission Date: 20181010
  Serious: Yes (Hospitalization)
  Sender: FDA-Public Use
  Company Number: IT-TEVA-2018-IT-919653

PATIENT
  Age: 3 Year

DRUGS (1)
  1. IBUPROFEN. [Suspect]
     Active Substance: IBUPROFEN
     Indication: EAR PAIN
     Route: 048
     Dates: start: 20180427, end: 20180428

REACTIONS (5)
  - Arthralgia [Recovered/Resolved]
  - Oedema [Recovered/Resolved]
  - Hypersensitivity [Recovered/Resolved]
  - Erythema [Recovered/Resolved]
  - Angioedema [Recovered/Resolved]

NARRATIVE: CASE EVENT DATE: 20180428
